FAERS Safety Report 4356201-4 (Version None)
Quarter: 2004Q2

REPORT INFORMATION
  Report Type: 
  Country: None (occurrence: None)
  Receive Date: 20040511
  Receipt Date: 20040429
  Transmission Date: 20050107
  Serious: No
  Sender: FDA-Public Use
  Company Number: 2000UW00375

PATIENT
  Age: 39 Year
  Sex: Male
  Weight: 79.3795 kg

DRUGS (4)
  1. SEROQUEL [Suspect]
     Indication: PSYCHOTIC DISORDER
     Dosage: 1200 MG DAILY PO
     Route: 048
     Dates: start: 19990502, end: 19991211
  2. SEROQUEL [Suspect]
     Indication: SCHIZOPHRENIA, PARANOID TYPE
     Dosage: 1200 MG DAILY PO
     Route: 048
     Dates: start: 19990502, end: 19991211
  3. COGENTIN [Concomitant]
  4. KLONOPIN [Concomitant]

REACTIONS (1)
  - NEUROPATHY PERIPHERAL [None]
